FAERS Safety Report 4300564-2 (Version None)
Quarter: 2004Q1

REPORT INFORMATION
  Report Type: 
  Country: None (occurrence: None)
  Receive Date: 20040219
  Receipt Date: 20040219
  Transmission Date: 20041129
  Serious: Yes (Hospitalization)
  Sender: FDA-Public Use
  Company Number: None

PATIENT
  Age: 63 Year
  Sex: Male

DRUGS (5)
  1. COUMADIN [Suspect]
     Indication: ATRIAL FIBRILLATION
     Dosage: 5 MG DAILY
     Dates: start: 20031125
  2. SIMVASTATIN [Concomitant]
  3. LISINOPRIL [Concomitant]
  4. LASIX [Concomitant]
  5. PROPYLIODONE [Concomitant]

REACTIONS (2)
  - COAGULOPATHY [None]
  - DRUG INTERACTION [None]
